FAERS Safety Report 21407615 (Version 1)
Quarter: 2022Q4

REPORT INFORMATION
  Report Type: Spontaneous
  Country: US (occurrence: US)
  Receive Date: 20221004
  Receipt Date: 20221004
  Transmission Date: 20230113
  Serious: Yes (Other)
  Sender: FDA-Public Use
  Company Number: US-LUPIN PHARMACEUTICALS INC.-2022-11621

PATIENT
  Age: 15 Year
  Sex: Male
  Weight: 86.64 kg

DRUGS (6)
  1. LURASIDONE [Suspect]
     Active Substance: LURASIDONE
     Indication: Dysphemia
     Dosage: 20 MG, QD
     Route: 065
  2. LURASIDONE [Suspect]
     Active Substance: LURASIDONE
     Dosage: 60 MG, QD
     Route: 065
  3. LURASIDONE [Suspect]
     Active Substance: LURASIDONE
     Dosage: 80 MG, QD
     Route: 065
  4. ARIPIPRAZOLE [Suspect]
     Active Substance: ARIPIPRAZOLE
     Indication: Dysphemia
     Dosage: 5 MG, QD
     Route: 065
  5. ARIPIPRAZOLE [Suspect]
     Active Substance: ARIPIPRAZOLE
     Dosage: 30 MG, QD (TITRATED TO)
     Route: 065
  6. ARIPIPRAZOLE [Suspect]
     Active Substance: ARIPIPRAZOLE
     Dosage: 30 MG, QD (RESTARTED)
     Route: 065

REACTIONS (4)
  - Tardive dyskinesia [Recovered/Resolved]
  - Weight increased [Recovering/Resolving]
  - Drug ineffective for unapproved indication [Unknown]
  - Off label use [Unknown]
